FAERS Safety Report 9107625 (Version 2)
Quarter: 2013Q2

REPORT INFORMATION
  Report Type: Report from Study
  Country: US (occurrence: US)
  Receive Date: 20130221
  Receipt Date: 20130506
  Transmission Date: 20140414
  Serious: Yes (Hospitalization)
  Sender: FDA-Public Use
  Company Number: US-US-EMD SERONO, INC.-7186735

PATIENT
  Age: 61 Year
  Sex: Female
  Weight: 89 kg

DRUGS (10)
  1. REBIF [Suspect]
     Indication: MULTIPLE SCLEROSIS
     Route: 058
     Dates: start: 20121214
  2. ADVIL [IBUPROFEN] [Concomitant]
     Indication: PREMEDICATION
  3. NEXIUM [Concomitant]
     Indication: PRODUCT USED FOR UNKNOWN INDICATION
  4. LOSARTAN [Concomitant]
     Indication: BLOOD CHOLESTEROL
  5. VISTARIL [Concomitant]
     Indication: ANXIETY
  6. WELLBUTRIN [Concomitant]
     Indication: DEPRESSION
  7. REMERON [Concomitant]
     Indication: SLEEP DISORDER
  8. XANAX [Concomitant]
     Indication: SLEEP DISORDER
  9. COMPAZINE [Concomitant]
     Indication: NAUSEA
  10. LIPITOR [Concomitant]
     Indication: BLOOD CHOLESTEROL

REACTIONS (3)
  - Thyroid cancer [Recovering/Resolving]
  - Dizziness [Unknown]
  - Injection site bruising [Not Recovered/Not Resolved]
